FAERS Safety Report 7357292-9 (Version None)
Quarter: 2011Q1

REPORT INFORMATION
  Report Type: 
  Country: None (occurrence: None)
  Receive Date: 20110311
  Receipt Date: 20110311
  Transmission Date: 20110831
  Serious: Yes (Other)
  Sender: FDA-Public Use
  Company Number: None

PATIENT
  Age: 46 Year
  Sex: Male
  Weight: 108.8633 kg

DRUGS (1)
  1. SIMVASTATIN [Suspect]
     Indication: BLOOD CHOLESTEROL INCREASED
     Dosage: 1 TABLET ONCE A DAY PO
     Route: 048
     Dates: start: 20110225, end: 20110309

REACTIONS (4)
  - PRURITUS [None]
  - BURNING SENSATION [None]
  - RASH [None]
  - MUSCLE TWITCHING [None]
